FAERS Safety Report 5283765-9 (Version None)
Quarter: 2007Q2

REPORT INFORMATION
  Report Type: 
  Country: None (occurrence: None)
  Receive Date: 20070402
  Receipt Date: 20070321
  Transmission Date: 20071010
  Serious: Yes (Hospitalization, Other)
  Sender: FDA-Public Use
  Company Number: US-AMGEN-STX216082

PATIENT
  Sex: Female

DRUGS (1)
  1. ENBREL [Suspect]
     Indication: PSORIASIS
     Route: 058
     Dates: start: 20050220

REACTIONS (6)
  - BILIARY CIRRHOSIS PRIMARY [None]
  - BIOPSY LIVER [None]
  - HERNIA REPAIR [None]
  - OOPHORECTOMY [None]
  - OVARIAN CYST [None]
  - SCAR EXCISION [None]
